FAERS Safety Report 14707814 (Version 11)
Quarter: 2024Q3

REPORT INFORMATION
  Report Type: Other
  Country: CA (occurrence: CA)
  Receive Date: 20180403
  Receipt Date: 20240917
  Transmission Date: 20241016
  Serious: Yes (Hospitalization, Other)
  Sender: APOTEX
  Company Number: CA-APOTEX-2018AP008705

PATIENT
  Age: 48 Year
  Sex: Female
  Weight: 106 kg

DRUGS (97)
  1. DEXAMETHASONE [Suspect]
     Active Substance: DEXAMETHASONE
     Indication: Supportive care
     Dosage: 20 MILLIGRAM, QD
     Route: 048
  2. DEXAMETHASONE [Suspect]
     Active Substance: DEXAMETHASONE
     Dosage: UNK
     Route: 048
  3. DEXAMETHASONE [Suspect]
     Active Substance: DEXAMETHASONE
     Dosage: 20 MILLIGRAM, QD
     Route: 048
  4. DEXAMETHASONE [Suspect]
     Active Substance: DEXAMETHASONE
     Dosage: UNK
     Route: 048
  5. FILGRASTIM [Suspect]
     Active Substance: FILGRASTIM
     Indication: Supportive care
     Dosage: 480 MICROGRAM, QD
     Route: 065
  6. FILGRASTIM [Suspect]
     Active Substance: FILGRASTIM
     Dosage: 480 MILLIGRAM, QD
     Route: 048
  7. FILGRASTIM [Suspect]
     Active Substance: FILGRASTIM
     Dosage: 125 MILLIGRAM, QD
     Route: 048
  8. FILGRASTIM [Suspect]
     Active Substance: FILGRASTIM
     Dosage: UNK
     Route: 048
  9. LORAZEPAM [Suspect]
     Active Substance: LORAZEPAM
     Indication: Tardive dyskinesia
     Dosage: 0.5 MILLIGRAM, BID, EVERY 12 HRS
     Route: 048
  10. LORAZEPAM [Suspect]
     Active Substance: LORAZEPAM
     Dosage: 0.5 MILLIGRAM, QD
     Route: 048
  11. LORAZEPAM [Suspect]
     Active Substance: LORAZEPAM
     Dosage: 0.5 MILLIGRAM
     Route: 048
  12. LORAZEPAM [Suspect]
     Active Substance: LORAZEPAM
     Dosage: 0.5 MILLIGRAM, BID
     Route: 048
  13. LORAZEPAM [Suspect]
     Active Substance: LORAZEPAM
     Dosage: UNK
     Route: 048
  14. LORAZEPAM [Suspect]
     Active Substance: LORAZEPAM
     Dosage: 1 MILLIGRAM, QD
     Route: 048
  15. RANITIDINE [Suspect]
     Active Substance: RANITIDINE
     Indication: Tardive dyskinesia
     Dosage: 150 MILLIGRAM, BID, EVERY 12 HRS
     Route: 048
  16. RANITIDINE [Suspect]
     Active Substance: RANITIDINE
     Dosage: 150 MILLIGRAM, Q.O.WK.
     Route: 065
  17. RANITIDINE [Suspect]
     Active Substance: RANITIDINE
     Dosage: 150 MILLIGRAM, Q.O.WK.
     Route: 048
  18. RANITIDINE [Suspect]
     Active Substance: RANITIDINE
     Dosage: 150 MILLIGRAM, Q.O.WK.
     Route: 048
  19. RANITIDINE [Suspect]
     Active Substance: RANITIDINE
     Dosage: UNK
     Route: 048
  20. RANITIDINE [Suspect]
     Active Substance: RANITIDINE
     Dosage: 150 MILLIGRAM
     Route: 048
  21. RANITIDINE [Suspect]
     Active Substance: RANITIDINE
     Dosage: 300 MILLIGRAM, QD
     Route: 048
  22. LEVOFLOXACIN [Suspect]
     Active Substance: LEVOFLOXACIN
     Indication: Tardive dyskinesia
     Dosage: 500 MILLIGRAM, QD
     Route: 048
  23. LEVOFLOXACIN [Suspect]
     Active Substance: LEVOFLOXACIN
     Dosage: 500 MILLIGRAM
     Route: 048
  24. LEVOFLOXACIN [Suspect]
     Active Substance: LEVOFLOXACIN
     Dosage: UNK
     Route: 048
  25. PACLITAXEL [Suspect]
     Active Substance: PACLITAXEL
     Indication: Breast cancer female
     Dosage: 303 MILLIGRAM
     Route: 042
  26. PACLITAXEL [Suspect]
     Active Substance: PACLITAXEL
     Indication: Supportive care
     Dosage: 393 MILLIGRAM
     Route: 042
  27. PACLITAXEL [Suspect]
     Active Substance: PACLITAXEL
     Dosage: 243 MILLIGRAM
     Route: 042
  28. PACLITAXEL [Suspect]
     Active Substance: PACLITAXEL
     Dosage: 303 MILLIGRAM
     Route: 042
  29. PACLITAXEL [Suspect]
     Active Substance: PACLITAXEL
     Dosage: 393 MILLIGRAM, QD
     Route: 042
  30. PACLITAXEL [Suspect]
     Active Substance: PACLITAXEL
     Dosage: 303 MILLIGRAM
     Route: 042
  31. PACLITAXEL [Suspect]
     Active Substance: PACLITAXEL
     Dosage: 393 MILLIGRAM
     Route: 042
  32. PACLITAXEL [Suspect]
     Active Substance: PACLITAXEL
     Dosage: 243 MILLIGRAM, QD
     Route: 042
  33. PACLITAXEL [Suspect]
     Active Substance: PACLITAXEL
     Dosage: UNK
     Route: 042
  34. ONDANSETRON [Suspect]
     Active Substance: ONDANSETRON
     Indication: Supportive care
     Dosage: 8 MILLIGRAM, QD
     Route: 048
  35. ONDANSETRON [Suspect]
     Active Substance: ONDANSETRON
     Dosage: UNK
     Route: 048
  36. ONDANSETRON [Suspect]
     Active Substance: ONDANSETRON
     Dosage: UNK
     Route: 065
  37. ONDANSETRON [Suspect]
     Active Substance: ONDANSETRON
     Dosage: UNK
     Route: 048
  38. METOCLOPRAMIDE [Suspect]
     Active Substance: METOCLOPRAMIDE
     Indication: Tardive dyskinesia
     Dosage: 10 MILLIGRAM, Q.6H
     Route: 048
  39. METOCLOPRAMIDE [Suspect]
     Active Substance: METOCLOPRAMIDE
     Dosage: 10 MILLIGRAM, QID
     Route: 048
  40. METOCLOPRAMIDE [Suspect]
     Active Substance: METOCLOPRAMIDE
     Dosage: 10 MILLIGRAM, QD
     Route: 048
  41. METOCLOPRAMIDE [Suspect]
     Active Substance: METOCLOPRAMIDE
     Dosage: 40 MILLIGRAM, QD
     Route: 048
  42. METOCLOPRAMIDE [Suspect]
     Active Substance: METOCLOPRAMIDE
     Dosage: UNK
     Route: 048
  43. PEGFILGRASTIM [Suspect]
     Active Substance: PEGFILGRASTIM
     Indication: Supportive care
     Dosage: 6 MILLIGRAM
     Route: 058
  44. BETAMETHASONE [Suspect]
     Active Substance: BETAMETHASONE
     Indication: Tardive dyskinesia
     Dosage: UNK, BID
     Route: 048
  45. BETAMETHASONE [Suspect]
     Active Substance: BETAMETHASONE
     Dosage: UNK
     Route: 065
  46. BETAMETHASONE [Suspect]
     Active Substance: BETAMETHASONE
     Dosage: UNK
     Route: 048
  47. BETAMETHASONE [Suspect]
     Active Substance: BETAMETHASONE
     Dosage: UNK, BID
     Route: 065
  48. DOXORUBICIN [Suspect]
     Active Substance: DOXORUBICIN
     Indication: Breast cancer female
     Dosage: 136 MILLIGRAM, 1 EVERY 14 DAYS
     Route: 042
  49. DOXORUBICIN [Suspect]
     Active Substance: DOXORUBICIN
     Dosage: 136 MILLIGRAM, Q.4H.
     Route: 042
  50. DOXORUBICIN [Suspect]
     Active Substance: DOXORUBICIN
     Dosage: 136 MILLIGRAM, Q.O.WK.
     Route: 042
  51. DOXORUBICIN [Suspect]
     Active Substance: DOXORUBICIN
     Dosage: 136 MILLIGRAM
     Route: 042
  52. DOXORUBICIN [Suspect]
     Active Substance: DOXORUBICIN
     Dosage: 136 MILLIGRAM, Q.O.WK.
     Route: 042
  53. DOXORUBICIN [Suspect]
     Active Substance: DOXORUBICIN
     Dosage: UNK
     Route: 042
  54. DOXORUBICIN [Suspect]
     Active Substance: DOXORUBICIN
     Dosage: UNK
     Route: 042
  55. ENOXAPARIN [Suspect]
     Active Substance: ENOXAPARIN
     Indication: Tardive dyskinesia
     Dosage: 150 MG, QD
     Route: 058
  56. ENOXAPARIN [Suspect]
     Active Substance: ENOXAPARIN
     Dosage: UNK
     Route: 058
  57. CYCLOPHOSPHAMIDE [Suspect]
     Active Substance: CYCLOPHOSPHAMIDE
     Indication: Breast cancer female
     Dosage: 1360 MILLIGRAM, Q.O.WK.
     Route: 042
  58. CYCLOPHOSPHAMIDE [Suspect]
     Active Substance: CYCLOPHOSPHAMIDE
     Indication: Tardive dyskinesia
     Dosage: 243 MILLIGRAM
     Route: 042
  59. CYCLOPHOSPHAMIDE [Suspect]
     Active Substance: CYCLOPHOSPHAMIDE
     Dosage: UNK
     Route: 065
  60. CYCLOPHOSPHAMIDE [Suspect]
     Active Substance: CYCLOPHOSPHAMIDE
     Dosage: 1360 MILLIGRAM
     Route: 042
  61. CYCLOPHOSPHAMIDE [Suspect]
     Active Substance: CYCLOPHOSPHAMIDE
     Dosage: 1360 MILLIGRAM, Q.O.WK.
     Route: 042
  62. CYCLOPHOSPHAMIDE [Suspect]
     Active Substance: CYCLOPHOSPHAMIDE
     Dosage: UNK
     Route: 042
  63. CYCLOPHOSPHAMIDE [Suspect]
     Active Substance: CYCLOPHOSPHAMIDE
     Dosage: UNK
     Route: 042
  64. CYCLOPHOSPHAMIDE [Suspect]
     Active Substance: CYCLOPHOSPHAMIDE
     Dosage: UNK
     Route: 065
  65. TRASTUZUMAB [Suspect]
     Active Substance: TRASTUZUMAB
     Indication: Tardive dyskinesia
     Dosage: 626 MILLIGRAM
     Route: 065
  66. TRASTUZUMAB [Suspect]
     Active Substance: TRASTUZUMAB
     Dosage: 866 MILLIGRAM
     Route: 065
  67. TRASTUZUMAB [Suspect]
     Active Substance: TRASTUZUMAB
     Dosage: 626 MILLIGRAM, QD
     Route: 065
  68. TRASTUZUMAB [Suspect]
     Active Substance: TRASTUZUMAB
     Dosage: 626 MILLIGRAM
     Route: 065
  69. TRASTUZUMAB [Suspect]
     Active Substance: TRASTUZUMAB
     Dosage: UNK
     Route: 065
  70. TRASTUZUMAB [Suspect]
     Active Substance: TRASTUZUMAB
     Dosage: 866 MILLIGRAM
     Route: 065
  71. TRASTUZUMAB [Suspect]
     Active Substance: TRASTUZUMAB
     Dosage: 866 MILLIGRAM, QD
     Route: 065
  72. TRASTUZUMAB [Suspect]
     Active Substance: TRASTUZUMAB
     Dosage: UNK
     Route: 048
  73. TRASTUZUMAB [Suspect]
     Active Substance: TRASTUZUMAB
     Dosage: UNK
     Route: 065
  74. TYLENOL WITH CODEINE [Suspect]
     Active Substance: ACETAMINOPHEN\CODEINE PHOSPHATE
     Indication: Tardive dyskinesia
     Dosage: 30 MG, UNK, EVERY 4 HRS
     Route: 065
  75. ACETAMINOPHEN AND CODEINE [Suspect]
     Active Substance: ACETAMINOPHEN\CODEINE PHOSPHATE
     Indication: Tardive dyskinesia
     Dosage: 30 MG, Q.4H
     Route: 065
  76. ACETAMINOPHEN AND CODEINE [Suspect]
     Active Substance: ACETAMINOPHEN\CODEINE PHOSPHATE
     Dosage: 30 MILLIGRAM, 6 EVERY 1 DAYS
     Route: 065
  77. ACETAMINOPHEN AND CODEINE [Suspect]
     Active Substance: ACETAMINOPHEN\CODEINE PHOSPHATE
     Dosage: 30 MILLIGRAM, QD
     Route: 065
  78. ACETAMINOPHEN AND CODEINE [Suspect]
     Active Substance: ACETAMINOPHEN\CODEINE PHOSPHATE
     Dosage: UNK
     Route: 065
  79. EMEND [Suspect]
     Active Substance: APREPITANT
     Indication: Supportive care
     Dosage: 50 MILLIGRAM, QD
     Route: 065
  80. RANITIDINE [Suspect]
     Active Substance: RANITIDINE
     Indication: Tardive dyskinesia
     Dosage: 150 MG, BID
     Route: 042
  81. ACETAMINOPHEN\CAFFEINE\CODEINE PHOSPHATE [Suspect]
     Active Substance: ACETAMINOPHEN\CAFFEINE\CODEINE PHOSPHATE
     Indication: Product used for unknown indication
     Dosage: 30 MILLIGRAM, ONE EVERY 4 HOURS
     Route: 065
  82. EMEND [Suspect]
     Active Substance: APREPITANT
     Indication: Supportive care
     Dosage: UNK
     Route: 048
  83. EMEND [Suspect]
     Active Substance: APREPITANT
     Dosage: 80 MILLIGRAM, QD
     Route: 048
  84. EMEND [Suspect]
     Active Substance: APREPITANT
     Dosage: 125 MILLIGRAM, QD
     Route: 048
  85. EMEND [Suspect]
     Active Substance: APREPITANT
     Dosage: 80 MILLIGRAM, QD
     Route: 048
  86. EMEND [Suspect]
     Active Substance: APREPITANT
     Dosage: 125 MILLIGRAM, QD
     Route: 048
  87. EMEND [Suspect]
     Active Substance: APREPITANT
     Dosage: 125 MILLIGRAM
     Route: 048
  88. EMEND [Suspect]
     Active Substance: APREPITANT
     Dosage: UNK
     Route: 048
  89. EMEND [Suspect]
     Active Substance: APREPITANT
     Dosage: UNK
     Route: 048
  90. ONDANSETRON [Suspect]
     Active Substance: ONDANSETRON
     Indication: Supportive care
     Dosage: UNK
     Route: 065
  91. ONDANSETRON [Suspect]
     Active Substance: ONDANSETRON
     Dosage: UNK
     Route: 048
  92. ONDANSETRON [Suspect]
     Active Substance: ONDANSETRON
     Dosage: 8 MILLIGRAM
     Route: 048
  93. ONDANSETRON [Suspect]
     Active Substance: ONDANSETRON
     Dosage: 8 MILLIGRAM, QD
     Route: 048
  94. ONDANSETRON [Suspect]
     Active Substance: ONDANSETRON
     Dosage: 8 MILLIGRAM
     Route: 048
  95. ONDANSETRON [Suspect]
     Active Substance: ONDANSETRON
     Dosage: 8 MILLIGRAM, QD
     Route: 048
  96. ACETAMINOPHEN AND CODEINE [Suspect]
     Active Substance: ACETAMINOPHEN\CODEINE PHOSPHATE
     Indication: Tardive dyskinesia
     Dosage: UNK
     Route: 065
  97. DEXAMETHASONE SODIUM PHOSPHATE [Suspect]
     Active Substance: DEXAMETHASONE PHOSPHATE\DEXAMETHASONE SODIUM PHOSPHATE
     Indication: Supportive care
     Dosage: 20 MILLIGRAM, QD
     Route: 048

REACTIONS (12)
  - Hypoxia [Recovered/Resolved]
  - Atelectasis [Recovered/Resolved]
  - Computerised tomogram thorax abnormal [Recovered/Resolved]
  - Computerised tomogram thorax [Recovered/Resolved]
  - Gastrointestinal disorder [Recovered/Resolved]
  - Cough [Recovered/Resolved]
  - Off label use [Recovered/Resolved]
  - Dyspnoea [Recovered/Resolved]
  - Fatigue [Recovered/Resolved]
  - Rash [Recovered/Resolved]
  - Pyrexia [Recovered/Resolved]
  - Nausea [Recovered/Resolved]
